FAERS Safety Report 14982543 (Version 5)
Quarter: 2020Q2

REPORT INFORMATION
  Report Type: Spontaneous
  Country: US (occurrence: US)
  Receive Date: 20180607
  Receipt Date: 20200415
  Transmission Date: 20200713
  Serious: No
  Sender: FDA-Public Use
  Company Number: US-PFIZER INC-2018233866

PATIENT
  Age: 77 Year
  Sex: Female

DRUGS (1)
  1. LYRICA [Suspect]
     Active Substance: PREGABALIN
     Dosage: 900 MG, DAILY (TAKE 2 CAPS BY MOUTH IN AM AND 1 CAP IN PM)
     Route: 048

REACTIONS (3)
  - Prescribed overdose [Unknown]
  - Malaise [Unknown]
  - Pain [Unknown]
